FAERS Safety Report 9420643 (Version 1)
Quarter: 2013Q3

REPORT INFORMATION
  Report Type: Spontaneous
  Country: US (occurrence: US)
  Receive Date: 20130725
  Receipt Date: 20130725
  Transmission Date: 20140515
  Serious: No
  Sender: FDA-Public Use
  Company Number: US-ABBOTT-13P-163-1096290-00

PATIENT
  Age: 38 Year
  Sex: Female
  Weight: 58.57 kg

DRUGS (3)
  1. SYNTHROID [Suspect]
     Indication: HYPOTHYROIDISM
     Dates: start: 2012
  2. CYTOMEL [Concomitant]
     Indication: HYPOTHYROIDISM
  3. ARMOUR THYROID [Concomitant]
     Indication: PRODUCT USED FOR UNKNOWN INDICATION

REACTIONS (6)
  - Poor quality drug administered [Recovering/Resolving]
  - Fatigue [Recovering/Resolving]
  - Memory impairment [Recovering/Resolving]
  - Swelling [Recovering/Resolving]
  - Exercise tolerance decreased [Recovering/Resolving]
  - Hypothyroidism [Recovering/Resolving]
